FAERS Safety Report 5690965-2 (Version None)
Quarter: 2008Q2

REPORT INFORMATION
  Report Type: 
  Country: None (occurrence: None)
  Receive Date: 20080401
  Receipt Date: 20080321
  Transmission Date: 20081010
  Serious: Yes (Other)
  Sender: FDA-Public Use
  Company Number: GB-PFIZER INC-2008018084

PATIENT
  Sex: Male
  Weight: 98 kg

DRUGS (8)
  1. LIPITOR [Suspect]
     Indication: BLOOD CHOLESTEROL
     Route: 048
     Dates: start: 20080205, end: 20080214
  2. LIPITOR [Suspect]
     Indication: TYPE 2 DIABETES MELLITUS
  3. ANALGESICS [Concomitant]
  4. ANTIINFLAMMATORY/ANTIRHEUMATIC PRODUCTS [Concomitant]
  5. ACETYLSALICYLIC ACID SRT [Concomitant]
     Indication: DIABETES MELLITUS
  6. DICLOFENAC [Concomitant]
     Indication: BACK PAIN
     Route: 048
  7. CODEINE PHOSPHATE AND ACETAMINOPHEN [Concomitant]
     Indication: BACK PAIN
     Dosage: TEXT:30/500-FREQ:2 TABLETS OF UNSPECIFIED UNIT DOSE DAILY
     Route: 048
  8. HYDROXOCOBALAMIN [Concomitant]
     Indication: VITAMIN B12 DECREASED
     Route: 030

REACTIONS (2)
  - BURNING SENSATION [None]
  - DIPLOPIA [None]
